FAERS Safety Report 5149565-5 (Version None)
Quarter: 2006Q4

REPORT INFORMATION
  Report Type: 
  Country: None (occurrence: None)
  Receive Date: 20061113
  Receipt Date: 20060508
  Transmission Date: 20070319
  Serious: No
  Sender: FDA-Public Use
  Company Number: US-GLAXOSMITHKLINE-A0604678A

PATIENT
  Sex: Female

DRUGS (6)
  1. COREG [Suspect]
     Indication: HYPERTENSION
     Dosage: 3.125MG THREE TIMES PER DAY
     Route: 048
     Dates: start: 20060401, end: 20060505
  2. ATACAND HCT [Concomitant]
  3. CLARINEX [Concomitant]
  4. MISOPROSTOL [Concomitant]
  5. MAGNESIUM OXIDE [Concomitant]
  6. AMBIEN [Concomitant]

REACTIONS (3)
  - DIZZINESS [None]
  - FATIGUE [None]
  - OEDEMA PERIPHERAL [None]
